FAERS Safety Report 15006602 (Version 1)
Quarter: 2018Q2

REPORT INFORMATION
  Report Type: Spontaneous
  Country: US (occurrence: US)
  Receive Date: 20180526
  Receipt Date: 20180526
  Transmission Date: 20180711
  Serious: Yes (Life-Threatening, Hospitalization, Disabling)
  Sender: FDA-Public Use
  Company Number: None

PATIENT
  Age: 80 Year
  Sex: Female
  Weight: 46.8 kg

DRUGS (1)
  1. PROLIA [Suspect]
     Active Substance: DENOSUMAB
     Indication: OSTEOPOROSIS
     Route: 058
     Dates: start: 20180201

REACTIONS (5)
  - Electrolyte depletion [None]
  - Blood calcium decreased [None]
  - Malaise [None]
  - Product quality issue [None]
  - Muscle spasms [None]

NARRATIVE: CASE EVENT DATE: 20180201
